FAERS Safety Report 16544340 (Version 1)
Quarter: 2019Q3

REPORT INFORMATION
  Report Type: Spontaneous
  Country: DE (occurrence: DE)
  Receive Date: 20190709
  Receipt Date: 20190709
  Transmission Date: 20191004
  Serious: Yes (Hospitalization)
  Sender: FDA-Public Use
  Company Number: PHHY2019DE154738

PATIENT
  Age: 78 Year
  Sex: Male

DRUGS (1)
  1. ASPIRIN. [Suspect]
     Active Substance: ASPIRIN
     Indication: PRODUCT USED FOR UNKNOWN INDICATION
     Dosage: 100 MG, QD (1-0-0-0)
     Route: 065

REACTIONS (5)
  - Night sweats [Unknown]
  - Anaemia [Unknown]
  - Skin haemorrhage [Unknown]
  - Urogenital haemorrhage [Unknown]
  - Pallor [Unknown]
